FAERS Safety Report 14006544 (Version 2)
Quarter: 2018Q3

REPORT INFORMATION
  Report Type: Report from Study
  Country: CA (occurrence: CA)
  Receive Date: 20170925
  Receipt Date: 20180731
  Transmission Date: 20181010
  Serious: Yes (Other)
  Sender: FDA-Public Use
  Company Number: CA-ORION CORPORATION ORION PHARMA-TREX2017-2919

PATIENT
  Age: 66 Year
  Sex: Female

DRUGS (6)
  1. ENBREL [Suspect]
     Active Substance: ETANERCEPT
     Indication: PSORIATIC ARTHROPATHY
     Route: 065
     Dates: start: 20170507
  2. TYLENOL [Concomitant]
     Active Substance: ACETAMINOPHEN
     Route: 065
  3. FOLIC ACID. [Concomitant]
     Active Substance: FOLIC ACID
     Route: 065
  4. METHOTREXATE (TRADE NAME UNKNOWN) [Suspect]
     Active Substance: METHOTREXATE
     Indication: PRODUCT USED FOR UNKNOWN INDICATION
     Route: 065
     Dates: start: 201708
  5. LYRICA [Concomitant]
     Active Substance: PREGABALIN
     Dosage: AT NIGHT
     Route: 065
  6. CYMBALTA [Concomitant]
     Active Substance: DULOXETINE HYDROCHLORIDE
     Route: 065

REACTIONS (9)
  - Drug effect incomplete [Unknown]
  - Insomnia [Unknown]
  - Condition aggravated [Unknown]
  - Abnormal sensation in eye [Unknown]
  - Psoriatic arthropathy [Unknown]
  - Eye pruritus [Unknown]
  - Dark circles under eyes [Unknown]
  - Eyelid oedema [Unknown]
  - Fatigue [Unknown]

NARRATIVE: CASE EVENT DATE: 2017
